FAERS Safety Report 8015929-5 (Version None)
Quarter: 2011Q4

REPORT INFORMATION
  Report Type: 
  Country: None (occurrence: None)
  Receive Date: 20111230
  Receipt Date: 20111222
  Transmission Date: 20120403
  Serious: Yes (Disabling)
  Sender: FDA-Public Use
  Company Number: SE-ABBOTT-11P-150-0886070-00

PATIENT
  Sex: Male

DRUGS (10)
  1. BEHEPAN B12 [Concomitant]
     Indication: PRODUCT USED FOR UNKNOWN INDICATION
  2. SITAGLIPTIN [Concomitant]
     Indication: DIABETES MELLITUS
  3. EZETIMIBE [Concomitant]
     Indication: HYPERCHOLESTEROLAEMIA
  4. KANDESARTAN [Concomitant]
     Indication: HYPERTENSION
  5. HUMIRA [Suspect]
     Indication: PSORIASIS
     Route: 058
     Dates: start: 20101122
  6. LANTUS [Concomitant]
     Indication: DIABETES MELLITUS
  7. AMLODIPINE [Concomitant]
     Indication: HYPERTENSION
  8. FENOFIBRATE [Suspect]
     Indication: HYPERLIPIDAEMIA
  9. SALURES [Concomitant]
     Indication: HYPERTENSION
  10. LANTUS [Concomitant]

REACTIONS (2)
  - DIABETES MELLITUS [None]
  - ABDOMINAL PAIN [None]
